FAERS Safety Report 5522270-9 (Version None)
Quarter: 2007Q4

REPORT INFORMATION
  Report Type: 
  Country: None (occurrence: None)
  Receive Date: 20071120
  Receipt Date: 20071108
  Transmission Date: 20080405
  Serious: Yes (Hospitalization)
  Sender: FDA-Public Use
  Company Number: US-ELI_LILLY_AND_COMPANY-US200711002128

PATIENT
  Sex: Female

DRUGS (5)
  1. FORTEO [Suspect]
     Dates: start: 20060501
  2. FORTEO [Suspect]
     Dates: start: 20060501
  3. PENTASA [Concomitant]
  4. PREVACID [Concomitant]
  5. GEMFIBROZIL [Concomitant]

REACTIONS (2)
  - DEHYDRATION [None]
  - GASTROINTESTINAL INFECTION [None]
